FAERS Safety Report 19562350 (Version 2)
Quarter: 2022Q3

REPORT INFORMATION
  Report Type: Spontaneous
  Country: CA (occurrence: CA)
  Receive Date: 20210716
  Receipt Date: 20220808
  Transmission Date: 20221026
  Serious: Yes (Hospitalization, Other)
  Sender: FDA-Public Use
  Company Number: CA-VALIDUS PHARMACEUTICALS LLC-CA-VDP-2021-000055

PATIENT
  Age: 49 Year
  Sex: Female

DRUGS (16)
  1. MEPERIDINE HYDROCHLORIDE [Suspect]
     Active Substance: MEPERIDINE HYDROCHLORIDE
     Indication: Product used for unknown indication
     Dosage: UNK
     Route: 065
  2. CLONAZEPAM [Suspect]
     Active Substance: CLONAZEPAM
     Indication: Depression
     Dosage: 0.5 MILLIGRAM
     Route: 065
  3. CLONAZEPAM [Suspect]
     Active Substance: CLONAZEPAM
     Indication: Anxiety
     Dosage: UNK
     Route: 065
  4. DIAZEPAM [Suspect]
     Active Substance: DIAZEPAM
     Indication: Preoperative care
     Dosage: 10 MILLIGRAM
     Route: 065
  5. MIDAZOLAM [Suspect]
     Active Substance: MIDAZOLAM
     Indication: Anaesthesia
     Dosage: 0.3 MICROGRAM/KILOGRAM
     Route: 065
  6. PAROXETINE HYDROCHLORIDE [Suspect]
     Active Substance: PAROXETINE HYDROCHLORIDE
     Indication: Depression
     Dosage: 40 MILLIGRAM
     Route: 065
  7. PAROXETINE HYDROCHLORIDE [Suspect]
     Active Substance: PAROXETINE HYDROCHLORIDE
     Indication: Anxiety
  8. QUETIAPINE FUMARATE [Suspect]
     Active Substance: QUETIAPINE FUMARATE
     Indication: Depression
     Dosage: 25 MILLIGRAM, BID
     Route: 065
  9. QUETIAPINE FUMARATE [Suspect]
     Active Substance: QUETIAPINE FUMARATE
     Indication: Anxiety
  10. FENTANYL [Suspect]
     Active Substance: FENTANYL
     Indication: Anaesthesia
     Dosage: 13 MICROGRAM/KILOGRAM
     Route: 042
  11. FLUVOXAMINE [Suspect]
     Active Substance: FLUVOXAMINE
     Indication: Product used for unknown indication
     Dosage: UNK
     Route: 065
  12. METHYLENE BLUE [Suspect]
     Active Substance: METHYLENE BLUE
     Indication: Hypotension
     Dosage: 1 MILLIGRAM/KILOGRAM
     Route: 065
  13. NOREPINEPHRINE [Suspect]
     Active Substance: NOREPINEPHRINE
     Indication: Hypotension
     Dosage: UNK
     Route: 065
  14. PROPOFOL [Suspect]
     Active Substance: PROPOFOL
     Indication: Induction of anaesthesia
     Dosage: 9 MILLIGRAM/KILOGRAM
     Route: 065
  15. ROCURONIUM [Suspect]
     Active Substance: ROCURONIUM BROMIDE
     Indication: Hypotonia
     Dosage: 1 MILLIGRAM/KILOGRAM
     Route: 065
  16. SEVOFLURANE [Suspect]
     Active Substance: SEVOFLURANE
     Indication: Maintenance of anaesthesia
     Dosage: UNK
     Route: 065

REACTIONS (11)
  - Alanine aminotransferase increased [Recovered/Resolved]
  - Amylase increased [Recovered/Resolved]
  - Blood creatine phosphokinase increased [Recovered/Resolved]
  - Blood lactate dehydrogenase increased [Recovered/Resolved]
  - Blood potassium increased [Recovered/Resolved]
  - Myoglobin urine present [Recovered/Resolved]
  - Drug interaction [Recovered/Resolved]
  - Toxic encephalopathy [Recovered/Resolved]
  - Troponin increased [Recovered/Resolved]
  - Serotonin syndrome [Recovered/Resolved]
  - Hypotension [Recovered/Resolved]
